FAERS Safety Report 9990069 (Version 1)
Quarter: 2014Q1

REPORT INFORMATION
  Report Type: Report from Study
  Country: US (occurrence: US)
  Receive Date: 20140310
  Receipt Date: 20140310
  Transmission Date: 20141002
  Serious: No
  Sender: FDA-Public Use
  Company Number: US-ABBVIE-13P-163-1132266-00

PATIENT
  Age: 40 Year
  Sex: Female

DRUGS (2)
  1. HUMIRA [Suspect]
     Indication: PSORIASIS
     Dates: start: 20130508
  2. PREDNISONE [Concomitant]
     Indication: BACK PAIN
     Dates: end: 20130808

REACTIONS (3)
  - Back pain [Recovering/Resolving]
  - Injection site erythema [Recovering/Resolving]
  - Injection site irritation [Recovering/Resolving]
